FAERS Safety Report 25401346 (Version 1)
Quarter: 2025Q2

REPORT INFORMATION
  Report Type: Spontaneous
  Country: FR (occurrence: FR)
  Receive Date: 20250605
  Receipt Date: 20250605
  Transmission Date: 20250716
  Serious: Yes (Hospitalization)
  Sender: UCB
  Company Number: None

PATIENT
  Age: 17 Year
  Sex: Male
  Weight: 70 kg

DRUGS (5)
  1. KEPPRA [Suspect]
     Active Substance: LEVETIRACETAM
     Indication: Status epilepticus
     Route: 042
     Dates: start: 20250522, end: 20250522
  2. ACYCLOVIR [Suspect]
     Active Substance: ACYCLOVIR
     Indication: Encephalitis herpes
     Dosage: 700 MILLIGRAM, 3X/DAY (TID)
     Route: 042
     Dates: start: 20250523, end: 20250524
  3. IOBITRIDOL [Suspect]
     Active Substance: IOBITRIDOL
     Indication: Diagnostic procedure
     Route: 042
     Dates: start: 20250522, end: 20250522
  4. MIDAZOLAM HYDROCHLORIDE [Suspect]
     Active Substance: MIDAZOLAM HYDROCHLORIDE
     Indication: Status epilepticus
     Route: 048
     Dates: start: 20250522, end: 20250523
  5. RIVOTRIL [Suspect]
     Active Substance: CLONAZEPAM
     Indication: Status epilepticus
     Dosage: 1 MILLIGRAM, ONCE DAILY (QD)
     Route: 042
     Dates: start: 20250522, end: 20250523

REACTIONS (1)
  - Acute kidney injury [Recovering/Resolving]

NARRATIVE: CASE EVENT DATE: 20250524
